FAERS Safety Report 21773181 (Version 1)
Quarter: 2022Q4

REPORT INFORMATION
  Report Type: Spontaneous
  Country: HR (occurrence: HR)
  Receive Date: 20221223
  Receipt Date: 20221223
  Transmission Date: 20230113
  Serious: Yes (Hospitalization, Other)
  Sender: FDA-Public Use
  Company Number: HR-BAYER-2022P026807

PATIENT
  Age: 73 Year
  Sex: Male

DRUGS (4)
  1. SUNITINIB MALATE [Suspect]
     Active Substance: SUNITINIB MALATE
     Dosage: 50 MG WAS STARTED, USING A SCHEMA OF 4 WEEKS OF DRUG INTAKE FOLLOWED BY A 2-WEEK PAUSE
     Dates: start: 202110
  2. SUNITINIB MALATE [Suspect]
     Active Substance: SUNITINIB MALATE
     Dosage: 37.5 MG, DOSE WAS REDUCED TO 37.5 MG
     Dates: start: 202204
  3. NEXAVAR [Suspect]
     Active Substance: SORAFENIB
     Indication: Renal cancer metastatic
     Dosage: UKNOWN
  4. ASPIRIN [Concomitant]
     Active Substance: ASPIRIN
     Dosage: UNK

REACTIONS (10)
  - Angiopathy [Unknown]
  - Cardiac disorder [Unknown]
  - Cold sweat [Unknown]
  - Thrombosis [Unknown]
  - Myocardial infarction [Unknown]
  - Hemiplegia [Unknown]
  - Acute coronary syndrome [Unknown]
  - Blood creatinine increased [Unknown]
  - Pyrexia [Unknown]
  - Chest pain [Unknown]
